FAERS Safety Report 10057348 (Version 2)
Quarter: 2014Q2

REPORT INFORMATION
  Report Type: Spontaneous
  Country: US (occurrence: US)
  Receive Date: 20140403
  Receipt Date: 20140410
  Transmission Date: 20141212
  Serious: No
  Sender: FDA-Public Use
  Company Number: US-BAXTER-2014BAX015926

PATIENT
  Age: 22 Year
  Sex: Male

DRUGS (13)
  1. GAMMAGARD LIQUID [Suspect]
     Indication: BLOOD IMMUNOGLOBULIN G DECREASED
     Route: 065
  2. GAMMAGARD LIQUID [Suspect]
     Route: 065
     Dates: start: 201209
  3. GAMMAGARD LIQUID [Suspect]
     Route: 042
     Dates: start: 2014
  4. GAMMAGARD LIQUID [Suspect]
     Route: 042
     Dates: start: 20140325, end: 20140325
  5. LEVOTHYROXINE [Concomitant]
     Indication: PRODUCT USED FOR UNKNOWN INDICATION
  6. LEXAPRO [Concomitant]
     Indication: DEPRESSION
  7. LEXAPRO [Concomitant]
  8. PRAZOSIN [Concomitant]
     Indication: POST-TRAUMATIC STRESS DISORDER
  9. TRAZODONE [Concomitant]
     Indication: PRODUCT USED FOR UNKNOWN INDICATION
  10. GABAPENTIN [Concomitant]
     Indication: PRODUCT USED FOR UNKNOWN INDICATION
  11. GABAPENTIN [Concomitant]
     Indication: ANGER
  12. PRIVIGEN [Concomitant]
     Indication: BLOOD IMMUNOGLOBULIN G DECREASED
  13. OCTAGAM [Concomitant]
     Indication: BLOOD IMMUNOGLOBULIN G DECREASED

REACTIONS (5)
  - Hypoaesthesia [Not Recovered/Not Resolved]
  - Fluid retention [Not Recovered/Not Resolved]
  - Abdominal distension [Not Recovered/Not Resolved]
  - Weight increased [Recovering/Resolving]
  - Anger [Unknown]
